FAERS Safety Report 6123617-5 (Version None)
Quarter: 2009Q1

REPORT INFORMATION
  Report Type: 
  Country: None (occurrence: None)
  Receive Date: 20090317
  Receipt Date: 20090317
  Transmission Date: 20090719
  Serious: No
  Sender: FDA-Public Use
  Company Number: None

PATIENT

DRUGS (1)
  1. TUBERCULIN PURIFIED PROTEIN 5TU/0.1ML JHP PHARMACEUTICALS [Suspect]
     Dosage: 0.1ML OTD ID
     Route: 023
     Dates: start: 20090210, end: 20090211

REACTIONS (3)
  - ERYTHEMA [None]
  - INJECTION SITE ERYTHEMA [None]
  - INJECTION SITE PRURITUS [None]
